FAERS Safety Report 6692145-0 (Version None)
Quarter: 2010Q2

REPORT INFORMATION
  Report Type: 
  Country: None (occurrence: None)
  Receive Date: 20100422
  Receipt Date: 20090727
  Transmission Date: 20101027
  Serious: No
  Sender: FDA-Public Use
  Company Number: US-ASTRAZENECA-2009UW21375

PATIENT
  Sex: Male

DRUGS (3)
  1. TOPROL-XL [Suspect]
     Indication: HYPERTENSION
     Route: 048
  2. DILTIAZEM HCL [Concomitant]
     Indication: BLOOD PRESSURE
  3. ATACAND HCT [Concomitant]
     Indication: BLOOD PRESSURE

REACTIONS (1)
  - BLOOD PRESSURE ABNORMAL [None]
